FAERS Safety Report 10083403 (Version 1)
Quarter: 2014Q2

REPORT INFORMATION
  Report Type: Spontaneous
  Country: NZ (occurrence: NZ)
  Receive Date: 20140417
  Receipt Date: 20140417
  Transmission Date: 20141212
  Serious: Yes (Disabling)
  Sender: FDA-Public Use
  Company Number: NZ-009507513-1404NZL008373

PATIENT
  Age: 63 Year
  Sex: Male

DRUGS (1)
  1. SIMVASTATIN [Suspect]
     Dosage: UNK
     Route: 048
     Dates: end: 20070522

REACTIONS (2)
  - Gait disturbance [Recovered/Resolved]
  - Headache [Recovered/Resolved]
